FAERS Safety Report 17553754 (Version 4)
Quarter: 2020Q4

REPORT INFORMATION
  Report Type: Report from Study
  Country: US (occurrence: US)
  Receive Date: 20200317
  Receipt Date: 20201008
  Transmission Date: 20210113
  Serious: Yes (Hospitalization, Other)
  Sender: FDA-Public Use
  Company Number: NVSC2020US076503

PATIENT
  Age: 54 Year
  Sex: Male

DRUGS (2)
  1. ENTRESTO [Suspect]
     Active Substance: SACUBITRIL\VALSARTAN
     Indication: EJECTION FRACTION DECREASED
     Dosage: 0.5 DF, BID (1/2 TABLET OF 24/26 MG BID)
     Route: 048
  2. ENTRESTO [Suspect]
     Active Substance: SACUBITRIL\VALSARTAN
     Indication: CARDIAC FAILURE
     Dosage: 1 DF, QD (24/26 MG)
     Route: 048
     Dates: start: 20200304

REACTIONS (11)
  - Haemorrhage [Recovering/Resolving]
  - Gangrene [Recovering/Resolving]
  - Sepsis [Recovering/Resolving]
  - Product prescribing error [Unknown]
  - Prescribed underdose [Unknown]
  - Gallbladder disorder [Recovering/Resolving]
  - Asthenia [Recovering/Resolving]
  - Wrong technique in product usage process [Unknown]
  - Necrosis [Recovering/Resolving]
  - Hypotension [Unknown]
  - Dizziness [Unknown]

NARRATIVE: CASE EVENT DATE: 20200304
